FAERS Safety Report 11192228 (Version 1)
Quarter: 2015Q2

REPORT INFORMATION
  Report Type: Spontaneous
  Country: AR (occurrence: AR)
  Receive Date: 20150616
  Receipt Date: 20150616
  Transmission Date: 20150821
  Serious: Yes (Hospitalization)
  Sender: FDA-Public Use
  Company Number: AR-PFIZER INC-2014299247

PATIENT
  Age: 52 Year
  Sex: Male

DRUGS (1)
  1. SUTENT [Suspect]
     Active Substance: SUNITINIB MALATE
     Indication: NEOPLASM MALIGNANT
     Dosage: 25 MG, 1X/DAY (4 WEEKS ON/1WEEK OFF)
     Dates: start: 20140306, end: 201503

REACTIONS (10)
  - Nervousness [Not Recovered/Not Resolved]
  - Diarrhoea [Unknown]
  - Disease progression [Unknown]
  - General physical health deterioration [Unknown]
  - Pain [Unknown]
  - Blood test abnormal [Unknown]
  - Neoplasm malignant [Unknown]
  - Ascites [Unknown]
  - Feeling abnormal [Not Recovered/Not Resolved]
  - Abdominal discomfort [Unknown]

NARRATIVE: CASE EVENT DATE: 20141027
